FAERS Safety Report 8042651-1 (Version None)
Quarter: 2012Q1

REPORT INFORMATION
  Report Type: 
  Country: None (occurrence: None)
  Receive Date: 20120112
  Receipt Date: 20120110
  Transmission Date: 20120608
  Serious: Yes (Life-Threatening, Other)
  Sender: FDA-Public Use
  Company Number: DE-BAYER-2011-107371

PATIENT
  Age: 24 Year
  Sex: Female

DRUGS (1)
  1. YAZ [Suspect]
     Indication: ORAL CONTRACEPTION

REACTIONS (10)
  - INTRACRANIAL VENOUS SINUS THROMBOSIS [None]
  - DEPRESSION [None]
  - BREAST PAIN [None]
  - CHEST PAIN [None]
  - DYSMENORRHOEA [None]
  - MOOD SWINGS [None]
  - MIGRAINE [None]
  - HEADACHE [None]
  - APATHY [None]
  - FEELING ABNORMAL [None]
